FAERS Safety Report 7406359-5 (Version None)
Quarter: 2011Q2

REPORT INFORMATION
  Report Type: 
  Country: None (occurrence: None)
  Receive Date: 20110411
  Receipt Date: 20110407
  Transmission Date: 20111010
  Serious: Yes (Hospitalization)
  Sender: FDA-Public Use
  Company Number: TH-PFIZER INC-2010181523

PATIENT
  Age: 72 Year
  Sex: Male

DRUGS (1)
  1. CEFOPERAZONE SODIUM AND SULBACTAM SODIUM [Suspect]
     Indication: PNEUMONIA
     Dosage: UNK
     Dates: start: 20090506, end: 20090520

REACTIONS (1)
  - TOXIC EPIDERMAL NECROLYSIS [None]
